FAERS Safety Report 13902219 (Version 1)
Quarter: 2017Q3

REPORT INFORMATION
  Report Type: Spontaneous
  Country: US (occurrence: US)
  Receive Date: 20170824
  Receipt Date: 20170824
  Transmission Date: 20171127
  Serious: No
  Sender: FDA-Public Use
  Company Number: US-ROCHE-774589

PATIENT
  Sex: Female

DRUGS (2)
  1. HERCEPTIN [Suspect]
     Active Substance: TRASTUZUMAB
     Indication: UNEVALUABLE EVENT
     Route: 042
     Dates: start: 20110302, end: 20110302
  2. CARBOPLATIN. [Suspect]
     Active Substance: CARBOPLATIN
     Indication: UNEVALUABLE EVENT
     Route: 065

REACTIONS (4)
  - Syncope [Unknown]
  - Medication error [Unknown]
  - Viral infection [Unknown]
  - Dehydration [Unknown]
